FAERS Safety Report 8348069-6 (Version None)
Quarter: 2012Q2

REPORT INFORMATION
  Report Type: 
  Country: None (occurrence: None)
  Receive Date: 20120509
  Receipt Date: 20120501
  Transmission Date: 20120825
  Serious: Yes (Hospitalization)
  Sender: FDA-Public Use
  Company Number: US-FRI-1000024789

PATIENT
  Sex: Female
  Weight: 65 kg

DRUGS (3)
  1. KLONOPIN [Concomitant]
     Dosage: 0.5 MG AM/LUNCH, 1 MG HS
     Route: 048
  2. VIIBRYD [Suspect]
     Indication: DEPRESSION
     Dosage: 10 MG
     Route: 048
     Dates: start: 20111004, end: 20111010
  3. VIIBRYD [Suspect]
     Dosage: 20 MG
     Route: 048
     Dates: start: 20111011, end: 20111017

REACTIONS (4)
  - SUICIDE ATTEMPT [None]
  - STRESS [None]
  - SUICIDAL IDEATION [None]
  - MENTAL DISORDER [None]
